FAERS Safety Report 5840805-3 (Version None)
Quarter: 2008Q3

REPORT INFORMATION
  Report Type: 
  Country: None (occurrence: None)
  Receive Date: 20080811
  Receipt Date: 20080604
  Transmission Date: 20090109
  Serious: No
  Sender: FDA-Public Use
  Company Number: US-BOEHRINGER INGELHEIM GMBH, GERMANY-2008-BP-03540BP

PATIENT
  Sex: Male
  Weight: 127 kg

DRUGS (1)
  1. MIRAPEX [Suspect]
     Indication: RESTLESS LEGS SYNDROME
     Dosage: 0.125 MG TWICE DAILY UP TO 1 MG TWICE DAILY
     Dates: start: 20021001, end: 20050712

REACTIONS (6)
  - COMPULSIVE SHOPPING [None]
  - EMOTIONAL DISTRESS [None]
  - IMPULSE-CONTROL DISORDER [None]
  - LIBIDO INCREASED [None]
  - OBSESSIVE-COMPULSIVE DISORDER [None]
  - PATHOLOGICAL GAMBLING [None]
